FAERS Safety Report 6687274-1 (Version None)
Quarter: 2010Q2

REPORT INFORMATION
  Report Type: 
  Country: None (occurrence: None)
  Receive Date: 20100415
  Receipt Date: 20100401
  Transmission Date: 20101027
  Serious: Yes (Other)
  Sender: FDA-Public Use
  Company Number: US-1181316

PATIENT
  Sex: Female
  Weight: 76.6579 kg

DRUGS (8)
  1. NEVANAC [Suspect]
     Indication: INTRAOCULAR PRESSURE INCREASED
     Dosage: (1 GTT TID X ONE WEEK OPHTHALMIC)
     Route: 047
     Dates: start: 20100311, end: 20100315
  2. NEVANAC [Suspect]
     Indication: POSTOPERATIVE CARE
     Dosage: (1 GTT TID X ONE WEEK OPHTHALMIC)
     Route: 047
     Dates: start: 20100311, end: 20100315
  3. XALATAN [Concomitant]
  4. BRIMONIDINE [Concomitant]
  5. AZOPT [Concomitant]
  6. LISINOPRIL [Concomitant]
  7. ACETAZOLAMIDE [Concomitant]
  8. DIAMOX SRC [Concomitant]

REACTIONS (9)
  - BURNING SENSATION [None]
  - CHILLS [None]
  - DRY MOUTH [None]
  - DRY SKIN [None]
  - GASTROINTESTINAL MOTILITY DISORDER [None]
  - ORAL PAIN [None]
  - PARAESTHESIA [None]
  - PRURITUS [None]
  - VISION BLURRED [None]
